FAERS Safety Report 5554928-X (Version None)
Quarter: 2007Q4

REPORT INFORMATION
  Report Type: 
  Country: None (occurrence: None)
  Receive Date: 20071213
  Receipt Date: 20071205
  Transmission Date: 20080405
  Serious: No
  Sender: FDA-Public Use
  Company Number: JP-BAXTER-2007BH009294

PATIENT
  Age: 44 Year
  Sex: Male

DRUGS (5)
  1. EXTRANEAL [Suspect]
     Indication: RENAL FAILURE
     Route: 033
     Dates: start: 20071104
  2. DIANEAL-N PD-2 1.5 [Concomitant]
     Indication: RENAL FAILURE
     Route: 033
     Dates: start: 20071104
  3. DIANEAL-N PD-2 2.5 [Concomitant]
     Indication: RENAL FAILURE
     Route: 033
     Dates: start: 20071104
  4. HUMULIN 70/30 [Concomitant]
     Indication: DIABETES MELLITUS
     Route: 058
  5. HUMULIN N [Concomitant]
     Indication: DIABETES MELLITUS
     Route: 058

REACTIONS (2)
  - DEVICE INTERACTION [None]
  - HYPOGLYCAEMIA [None]
